FAERS Safety Report 23175474 (Version 2)
Quarter: 2023Q4

REPORT INFORMATION
  Report Type: Report from Study
  Country: CO (occurrence: CO)
  Receive Date: 20231113
  Receipt Date: 20231208
  Transmission Date: 20240110
  Serious: Yes (Life-Threatening, Hospitalization, Other)
  Sender: FDA-Public Use
  Company Number: CO-ABBVIE-5491223

PATIENT
  Sex: Male
  Weight: 68 kg

DRUGS (3)
  1. HUMIRA [Suspect]
     Active Substance: ADALIMUMAB
     Indication: Product used for unknown indication
     Route: 058
     Dates: start: 20140320
  2. HUMIRA [Suspect]
     Active Substance: ADALIMUMAB
  3. ZEMPLAR [Suspect]
     Active Substance: PARICALCITOL
     Indication: Chronic kidney disease
     Dosage: FORM STRENGTH: 5 MICROGRAMS
     Route: 065
     Dates: start: 20140320, end: 20230621

REACTIONS (10)
  - Device related sepsis [Not Recovered/Not Resolved]
  - Complication associated with device [Recovering/Resolving]
  - Device dislocation [Unknown]
  - Loss of consciousness [Not Recovered/Not Resolved]
  - Device physical property issue [Unknown]
  - Catheter placement [Recovering/Resolving]
  - Blood potassium abnormal [Recovering/Resolving]
  - Stress [Not Recovered/Not Resolved]
  - Hypotension [Recovering/Resolving]
  - Complication associated with device [Unknown]

NARRATIVE: CASE EVENT DATE: 20230101
